FAERS Safety Report 7701085-7 (Version None)
Quarter: 2011Q3

REPORT INFORMATION
  Report Type: 
  Country: None (occurrence: None)
  Receive Date: 20110819
  Receipt Date: 20110819
  Transmission Date: 20111222
  Serious: Yes (Hospitalization)
  Sender: FDA-Public Use
  Company Number: None

PATIENT
  Sex: Male

DRUGS (1)
  1. NALTREXONE HYDROCHLORIDE [Suspect]
     Indication: DRUG DEPENDENCE
     Dosage: 380MG EVERY 4 WKS IM 4 OF 6 MONTHLY SHOTS
     Route: 030
     Dates: start: 20110714

REACTIONS (1)
  - CHEST PAIN [None]
